FAERS Safety Report 11083428 (Version 1)
Quarter: 2015Q2

REPORT INFORMATION
  Report Type: Report from Study
  Country: US (occurrence: US)
  Receive Date: 20150501
  Receipt Date: 20150501
  Transmission Date: 20150821
  Serious: Yes (Other)
  Sender: FDA-Public Use
  Company Number: US-ABBVIE-14P-163-1291701-00

PATIENT
  Sex: Male
  Weight: 108.96 kg

DRUGS (3)
  1. RAMIPRIL. [Concomitant]
     Active Substance: RAMIPRIL
     Indication: HYPERTENSION
  2. ANDROGEL [Suspect]
     Active Substance: TESTOSTERONE
     Indication: BLOOD TESTOSTERONE DECREASED
     Dates: start: 201109, end: 201406
  3. ANDROGEL [Suspect]
     Active Substance: TESTOSTERONE
     Dates: start: 201408

REACTIONS (7)
  - Hypothyroidism [Not Recovered/Not Resolved]
  - Weight increased [Unknown]
  - Tachycardia [Recovered/Resolved]
  - Haematocrit increased [Not Recovered/Not Resolved]
  - Anxiety [Recovered/Resolved]
  - Insomnia [Not Recovered/Not Resolved]
  - Dizziness [Not Recovered/Not Resolved]

NARRATIVE: CASE EVENT DATE: 2011
